FAERS Safety Report 25932085 (Version 3)
Quarter: 2025Q4

REPORT INFORMATION
  Report Type: Spontaneous
  Country: CA (occurrence: CA)
  Receive Date: 20251016
  Receipt Date: 20251104
  Transmission Date: 20260118
  Serious: Yes (Other)
  Sender: ASTELLAS
  Company Number: CA-PFIZER INC-PV202500119502

PATIENT
  Age: 74 Year
  Sex: Male

DRUGS (2)
  1. PADCEV [Suspect]
     Active Substance: ENFORTUMAB VEDOTIN-EJFV
     Indication: Transitional cell carcinoma metastatic
     Dosage: POWDER FOR SOLUTION FOR INFUSION?1.25 MG/KG, CYCLIC (D1 D8 OF 21 DAY CYCLE)
     Route: 065
     Dates: start: 20250602, end: 2025
  2. KEYTRUDA [Concomitant]
     Active Substance: PEMBROLIZUMAB
     Indication: Product used for unknown indication
     Route: 065

REACTIONS (3)
  - Transitional cell carcinoma metastatic [Unknown]
  - Malignant neoplasm progression [Unknown]
  - Autoimmune dermatitis [Unknown]
